FAERS Safety Report 8174968-4 (Version None)
Quarter: 2012Q1

REPORT INFORMATION
  Report Type: 
  Country: None (occurrence: None)
  Receive Date: 20120229
  Receipt Date: 20120223
  Transmission Date: 20120608
  Serious: Yes (Death, Hospitalization, Other)
  Sender: FDA-Public Use
  Company Number: US-ELI_LILLY_AND_COMPANY-US201201008133

PATIENT
  Sex: Female

DRUGS (2)
  1. HUMALOG [Suspect]
     Indication: TYPE 1 DIABETES MELLITUS
     Dosage: 12 U, QID
     Dates: start: 20110301
  2. HUMULIN N [Suspect]
     Indication: TYPE 1 DIABETES MELLITUS
     Dosage: 20 U, BID
     Dates: start: 20110801

REACTIONS (5)
  - MULTI-ORGAN FAILURE [None]
  - BLOOD GLUCOSE INCREASED [None]
  - SEPSIS [None]
  - DISORIENTATION [None]
  - URINARY TRACT INFECTION [None]
